FAERS Safety Report 7038919 (Version 6)
Quarter: 2013Q3

REPORT INFORMATION
  Report Type: Report from Study
  Country: US (occurrence: US)
  Receive Date: 20090701
  Receipt Date: 20130917
  Transmission Date: 20140515
  Serious: Yes (Hospitalization)
  Sender: FDA-Public Use
  Company Number: US-BRISTOL-MYERS SQUIBB COMPANY-14676720

PATIENT
  Age: 68 Year
  Sex: Male
  Weight: 57.4 kg

DRUGS (3)
  1. PACLITAXEL [Suspect]
     Indication: OESOPHAGEAL SQUAMOUS CELL CARCINOMA
     Dosage: INITIAL:26MAY09?IV 5OMG/M2 DAY 1,8,15,22,29,36
     Route: 042
     Dates: start: 20090526, end: 20090526
  2. ERBITUX [Suspect]
     Indication: OESOPHAGEAL SQUAMOUS CELL CARCINOMA
     Dosage: INITIATED ON 26MAY09?400MG/M2:DAY 1?250MG/M2:DAY 8,15,22,29,36?RECENT INF 16JUN09
     Route: 042
     Dates: start: 20090526, end: 20090616
  3. CISPLATIN [Suspect]
     Indication: OESOPHAGEAL SQUAMOUS CELL CARCINOMA
     Dosage: INI: 26MAY09?IV 25MG/M2 DAY 1,8,15,22,29,36
     Route: 042
     Dates: start: 20090526, end: 20090526

REACTIONS (8)
  - Hypokalaemia [Recovered/Resolved]
  - Dehydration [Not Recovered/Not Resolved]
  - Back pain [Not Recovered/Not Resolved]
  - Fatigue [Not Recovered/Not Resolved]
  - Nausea [Not Recovered/Not Resolved]
  - Weight decreased [Not Recovered/Not Resolved]
  - Oesophageal pain [Not Recovered/Not Resolved]
  - Anaemia [Recovered/Resolved]
